FAERS Safety Report 25336064 (Version 2)
Quarter: 2025Q3

REPORT INFORMATION
  Report Type: Report from Study
  Country: US (occurrence: None)
  Receive Date: 20250520
  Receipt Date: 20250809
  Transmission Date: 20251020
  Serious: Yes (Other)
  Sender: ALEXION PHARMACEUTICALS
  Company Number: US-ASTRAZENECA-202505USA013054US

PATIENT
  Age: 73 Year
  Sex: Male

DRUGS (5)
  1. LYNPARZA [Suspect]
     Active Substance: OLAPARIB
     Indication: Product used for unknown indication
     Route: 065
  2. TREPROSTINIL [Suspect]
     Active Substance: TREPROSTINIL
     Indication: Product used for unknown indication
  3. TYVASO DPI [Suspect]
     Active Substance: TREPROSTINIL
     Indication: Pulmonary arterial hypertension
     Route: 065
  4. LUPRON [Suspect]
     Active Substance: LEUPROLIDE ACETATE
     Indication: Product used for unknown indication
     Route: 065
  5. ABIRATERONE ACETATE [Suspect]
     Active Substance: ABIRATERONE ACETATE
     Indication: Product used for unknown indication
     Route: 065

REACTIONS (6)
  - Pulmonary arterial hypertension [Unknown]
  - Prostate cancer [Unknown]
  - Anal incontinence [Unknown]
  - Incontinence [Unknown]
  - Hot flush [Unknown]
  - Dysphagia [Unknown]
